FAERS Safety Report 10885884 (Version 1)
Quarter: 2015Q1

REPORT INFORMATION
  Report Type: Spontaneous
  Country: US (occurrence: US)
  Receive Date: 20150304
  Receipt Date: 20150304
  Transmission Date: 20150721
  Serious: Yes (Death)
  Sender: FDA-Public Use
  Company Number: US-BANPHARM-20153540

PATIENT
  Age: 35 Year
  Sex: Male

DRUGS (4)
  1. DOXEPIN [Suspect]
     Active Substance: DOXEPIN
  2. ALPRAZOLAM. [Suspect]
     Active Substance: ALPRAZOLAM
  3. DIPHENHYDRAMINE UNKNOWN PRODUCT [Suspect]
     Active Substance: DIPHENHYDRAMINE
  4. METHADONE [Suspect]
     Active Substance: METHADONE HYDROCHLORIDE

REACTIONS (2)
  - Drug abuse [Fatal]
  - Exposure via ingestion [None]
